FAERS Safety Report 5328061-6 (Version None)
Quarter: 2007Q2

REPORT INFORMATION
  Report Type: 
  Country: None (occurrence: None)
  Receive Date: 20070514
  Receipt Date: 20070427
  Transmission Date: 20071010
  Serious: Yes (Hospitalization)
  Sender: FDA-Public Use
  Company Number: 2007RR-07137

PATIENT
  Age: 49 Year
  Sex: Male

DRUGS (1)
  1. RANITIDINE [Suspect]
     Indication: ABDOMINAL PAIN UPPER

REACTIONS (5)
  - CLOSTRIDIAL INFECTION [None]
  - DRUG SCREEN POSITIVE [None]
  - GIARDIASIS [None]
  - INFECTION IN AN IMMUNOCOMPROMISED HOST [None]
  - WEIGHT DECREASED [None]
